FAERS Safety Report 7258067-1 (Version None)
Quarter: 2011Q1

REPORT INFORMATION
  Report Type: 
  Country: None (occurrence: None)
  Receive Date: 20110129
  Receipt Date: 20100614
  Transmission Date: 20110831
  Serious: No
  Sender: FDA-Public Use
  Company Number: US-ABBOTT-10P-163-0651790-00

PATIENT
  Sex: Female
  Weight: 87.168 kg

DRUGS (6)
  1. NEXIUM [Concomitant]
     Indication: DYSPEPSIA
     Route: 048
  2. HUMIRA [Suspect]
     Route: 058
     Dates: start: 20100501
  3. PAROXETINE HCL [Concomitant]
     Indication: DEPRESSION
     Route: 048
  4. CEPHALEXIN [Concomitant]
     Indication: KNEE ARTHROPLASTY
  5. HUMIRA [Suspect]
     Indication: RHEUMATOID ARTHRITIS
     Route: 058
     Dates: start: 20090901, end: 20100501
  6. CEPHALEXIN [Concomitant]
     Indication: PROPHYLAXIS
     Route: 048
     Dates: start: 20060101

REACTIONS (5)
  - PYREXIA [None]
  - CHEST DISCOMFORT [None]
  - DIARRHOEA [None]
  - UPPER-AIRWAY COUGH SYNDROME [None]
  - COUGH [None]
